FAERS Safety Report 8057289-X (Version None)
Quarter: 2012Q1

REPORT INFORMATION
  Report Type: 
  Country: None (occurrence: None)
  Receive Date: 20120119
  Receipt Date: 20120117
  Transmission Date: 20120608
  Serious: Yes (Death)
  Sender: FDA-Public Use
  Company Number: PHEH2012US001653

PATIENT
  Sex: Female

DRUGS (7)
  1. RECLAST [Suspect]
     Indication: OSTEOPOROSIS
     Dosage: 5 MG/100 ML
     Route: 042
     Dates: start: 20101116, end: 20101117
  2. AMOXICILLIN [Concomitant]
     Dosage: 250 MG, ONCE/SINGLE
     Route: 048
  3. VICODIN [Concomitant]
     Dosage: 500 MG, ONCE/SINGLE
     Route: 048
  4. PREDNISONE TAB [Concomitant]
     Dosage: 1 MG, UNK
     Route: 048
     Dates: start: 20100927
  5. THERMACARE [Concomitant]
     Dosage: UNK UKN, UNK
  6. LASIX [Concomitant]
     Dosage: 10 MG/L, ONCE/SINGLE
     Route: 048
     Dates: start: 20070919
  7. NASONEX [Concomitant]
     Dosage: 50 MCG
     Route: 045

REACTIONS (1)
  - DEATH [None]
